FAERS Safety Report 8184415 (Version 4)
Quarter: 2013Q4

REPORT INFORMATION
  Report Type: Spontaneous
  Country: IE (occurrence: IE)
  Receive Date: 20111017
  Receipt Date: 20131031
  Transmission Date: 20140711
  Serious: Yes (Other)
  Sender: FDA-Public Use
  Company Number: IE-009507513-1110GBR00048

PATIENT
  Age: 28 Year
  Sex: Male
  Weight: 75 kg

DRUGS (2)
  1. PROSCAR [Suspect]
     Indication: ALOPECIA
     Dosage: 5 MG, BID
     Route: 048
     Dates: start: 2007, end: 2009
  2. INSULIN [Concomitant]
     Indication: TYPE 1 DIABETES MELLITUS
     Dosage: 4 DF, QID
     Dates: start: 2010

REACTIONS (4)
  - Pancreatitis chronic [Not Recovered/Not Resolved]
  - Off label use [Unknown]
  - Prescribed overdose [Unknown]
  - Type 1 diabetes mellitus [Unknown]
